FAERS Safety Report 6331851-4 (Version None)
Quarter: 2009Q3

REPORT INFORMATION
  Report Type: 
  Country: None (occurrence: None)
  Receive Date: 20090826
  Receipt Date: 20090818
  Transmission Date: 20100115
  Serious: Yes (Hospitalization)
  Sender: FDA-Public Use
  Company Number: IDR-00292

PATIENT
  Age: 30 Year
  Sex: Female

DRUGS (2)
  1. INDERAL LA [Suspect]
     Indication: MIGRAINE
     Dosage: 1 CAPSULE QD
     Dates: start: 20090601
  2. ZOLOFT [Concomitant]

REACTIONS (4)
  - GASTROINTESTINAL DISORDER [None]
  - NAUSEA [None]
  - VOMITING [None]
  - WEIGHT DECREASED [None]
